FAERS Safety Report 9578062 (Version 2)
Quarter: 2013Q4

REPORT INFORMATION
  Report Type: Spontaneous
  Country: US (occurrence: US)
  Receive Date: 20131001
  Receipt Date: 20131001
  Transmission Date: 20140711
  Serious: No
  Sender: FDA-Public Use
  Company Number: US-AMGEN-USASP2013009087

PATIENT
  Age: 39 Year
  Sex: Female
  Weight: 86.17 kg

DRUGS (4)
  1. ENBREL [Suspect]
     Indication: PSORIATIC ARTHROPATHY
     Dosage: 50 UNK, QWK
     Route: 058
     Dates: start: 201211
  2. CELEBREX [Concomitant]
     Dosage: 200 MG, UNK
     Route: 048
  3. PREDNISONE [Concomitant]
     Dosage: 10 MG, UNK
     Route: 048
  4. TRAMADOL HCL [Concomitant]
     Dosage: 50 MG, MONTHS/YEARS
     Route: 048

REACTIONS (1)
  - Herpes zoster [Recovered/Resolved]
